FAERS Safety Report 17621392 (Version 1)
Quarter: 2020Q2

REPORT INFORMATION
  Report Type: Spontaneous
  Country: US (occurrence: US)
  Receive Date: 20200401
  Receipt Date: 20200401
  Transmission Date: 20200713
  Serious: Yes (Life-Threatening)
  Sender: FDA-Public Use
  Company Number: None

PATIENT
  Age: 74 Year
  Sex: Female
  Weight: 93 kg

DRUGS (9)
  1. VECURONIUM [Concomitant]
     Active Substance: VECURONIUM BROMIDE
  2. NOREPINEPHRINE. [Concomitant]
     Active Substance: NOREPINEPHRINE
  3. CALCIUM CHLORIDE. [Concomitant]
     Active Substance: CALCIUM CHLORIDE
  4. PHENYEPHRINE [Concomitant]
     Active Substance: PHENYLEPHRINE HYDROCHLORIDE
  5. CARDIOPLEGIC SOLUTION [Concomitant]
     Active Substance: CALCIUM CHLORIDE\MAGNESIUM CHLORIDE\POTASSIUM CHLORIDE\SODIUM CHLORIDE
  6. PROTAMINE SULFATE 10MG/ML, 25ML VIAL [Suspect]
     Active Substance: PROTAMINE SULFATE
     Indication: PROCOAGULANT THERAPY
     Route: 042
     Dates: start: 20200326, end: 20200326
  7. EPINEPHRIINE [Concomitant]
  8. AMINOCARPROIC ACID [Concomitant]
  9. MIDAZOLAM. [Concomitant]
     Active Substance: MIDAZOLAM

REACTIONS (4)
  - Hypotension [None]
  - Tachycardia [None]
  - Ejection fraction decreased [None]
  - Pulmonary arterial pressure increased [None]

NARRATIVE: CASE EVENT DATE: 20200326
